FAERS Safety Report 22298335 (Version 2)
Quarter: 2023Q2

REPORT INFORMATION
  Report Type: Report from Study
  Country: US (occurrence: US)
  Receive Date: 20230509
  Receipt Date: 20230523
  Transmission Date: 20230722
  Serious: Yes (Hospitalization, Other)
  Sender: FDA-Public Use
  Company Number: US-BRISTOL-MYERS SQUIBB COMPANY-2023-062540

PATIENT

DRUGS (2)
  1. CABOZANTINIB [Suspect]
     Active Substance: CABOZANTINIB
     Indication: Renal cell carcinoma
     Dosage: 40 MG, QD
     Route: 048
     Dates: start: 20230207, end: 20230403
  2. NIVOLUMAB [Suspect]
     Active Substance: NIVOLUMAB
     Indication: Renal cell carcinoma
     Dosage: 240 MG 1 EVERY 2 WEEK
     Route: 042
     Dates: start: 20230207, end: 20230404

REACTIONS (1)
  - Opsoclonus myoclonus [Recovering/Resolving]

NARRATIVE: CASE EVENT DATE: 20230418
